FAERS Safety Report 17164378 (Version 1)
Quarter: 2019Q4

REPORT INFORMATION
  Report Type: Spontaneous
  Country: PT (occurrence: PT)
  Receive Date: 20191217
  Receipt Date: 20191217
  Transmission Date: 20200122
  Serious: Yes (Disabling, Other)
  Sender: FDA-Public Use
  Company Number: PT-MYLANLABS-2019M1123087

PATIENT
  Age: 77 Year
  Sex: Female
  Weight: 65 kg

DRUGS (3)
  1. CAPTOPRIL. [Concomitant]
     Active Substance: CAPTOPRIL
     Dosage: UNK
  2. DAFLON                             /00426001/ [Concomitant]
     Active Substance: DIOSMIN
     Dosage: UNK
     Route: 048
  3. CIPROFLOXACIN. [Suspect]
     Active Substance: CIPROFLOXACIN
     Indication: ANTIBIOTIC PROPHYLAXIS
     Dosage: 500MG, 2X AO DIA, 12H-12H (APENAS FEZ 14CP)
     Route: 048
     Dates: start: 20190706, end: 20190712

REACTIONS (7)
  - Platelet count increased [Unknown]
  - White blood cell count increased [Unknown]
  - Tachycardia [Recovered/Resolved]
  - Product use in unapproved indication [Unknown]
  - Arthralgia [Recovering/Resolving]
  - Hyperglycaemia [Unknown]
  - Decreased appetite [Recovering/Resolving]

NARRATIVE: CASE EVENT DATE: 20190706
